FAERS Safety Report 20327874 (Version 2)
Quarter: 2022Q1

REPORT INFORMATION
  Report Type: Report from Study
  Country: US (occurrence: US)
  Receive Date: 20220112
  Receipt Date: 20220119
  Transmission Date: 20220423
  Serious: Yes (Hospitalization)
  Sender: FDA-Public Use
  Company Number: US-PFIZER INC-202101883417

PATIENT
  Age: 67 Year
  Sex: Female
  Weight: 63.18 kg

DRUGS (3)
  1. TALAZOPARIB [Suspect]
     Active Substance: TALAZOPARIB
     Indication: Ovarian cancer stage III
     Dosage: 350 UG, CYCLIC (ON DAYS 1-7, CYCLE = 21 DAYS)
     Route: 048
     Dates: start: 20160420, end: 20160426
  2. CARBOPLATIN [Suspect]
     Active Substance: CARBOPLATIN
     Indication: Ovarian cancer stage III
     Dosage: AUC 6 IV OVER 30 MIN CYCLIC (ON DAY 1, CYCLE = 21 DAYS)
     Route: 042
     Dates: start: 20160420, end: 20160420
  3. TAXOL [Suspect]
     Active Substance: PACLITAXEL
     Indication: Ovarian cancer stage III
     Dosage: 80 MG/M2, CYCLIC (OVER 1 HR ON DAYS 1, 8 AND 15, CYCLE = 21 DAYS)
     Route: 042
     Dates: start: 20160420, end: 20160427

REACTIONS (2)
  - Febrile neutropenia [Not Recovered/Not Resolved]
  - Platelet count decreased [Not Recovered/Not Resolved]

NARRATIVE: CASE EVENT DATE: 20160502
